FAERS Safety Report 19730432 (Version 2)
Quarter: 2021Q3

REPORT INFORMATION
  Report Type: Report from Study
  Country: CA (occurrence: CA)
  Receive Date: 20210820
  Receipt Date: 20210827
  Transmission Date: 20211014
  Serious: Yes (Other)
  Sender: FDA-Public Use
  Company Number: NVSC2021CA055704

PATIENT
  Age: 22 Year
  Sex: Female

DRUGS (8)
  1. XOLAIR [Suspect]
     Active Substance: OMALIZUMAB
     Dosage: 300 MG, BIW
     Route: 058
  2. XOLAIR [Suspect]
     Active Substance: OMALIZUMAB
     Indication: CHRONIC SPONTANEOUS URTICARIA
     Dosage: 150 MG EVERY 4 WEEKS
     Route: 058
     Dates: start: 20210112
  3. XOLAIR [Suspect]
     Active Substance: OMALIZUMAB
     Dosage: 450 MG, EVERY 4 WEEK
     Route: 058
     Dates: start: 20210727
  4. PREDNISONE. [Concomitant]
     Active Substance: PREDNISONE
     Indication: PRODUCT USED FOR UNKNOWN INDICATION
     Dosage: UNK
     Route: 061
  5. XOLAIR [Suspect]
     Active Substance: OMALIZUMAB
     Dosage: 300 MG, EVERY 4 WEEK
     Route: 058
  6. XOLAIR [Suspect]
     Active Substance: OMALIZUMAB
     Dosage: 300 MG, EVERY 4 WEEK
     Route: 058
     Dates: start: 20210406
  7. XOLAIR [Suspect]
     Active Substance: OMALIZUMAB
     Dosage: 150 MG, EVERY 4 WEEKS
     Route: 058
     Dates: start: 20210601
  8. XOLAIR [Suspect]
     Active Substance: OMALIZUMAB
     Dosage: 450 MG, EVERY 4 WEEKS
     Route: 058
     Dates: start: 20210617

REACTIONS (9)
  - Peripheral swelling [Not Recovered/Not Resolved]
  - Urticaria [Not Recovered/Not Resolved]
  - Incorrect dose administered [Unknown]
  - Drug ineffective [Unknown]
  - Pruritus [Not Recovered/Not Resolved]
  - Lip swelling [Not Recovered/Not Resolved]
  - Angioedema [Unknown]
  - Fungal infection [Unknown]
  - Condition aggravated [Not Recovered/Not Resolved]

NARRATIVE: CASE EVENT DATE: 20210406
